FAERS Safety Report 7505199-6 (Version None)
Quarter: 2011Q2

REPORT INFORMATION
  Report Type: 
  Country: None (occurrence: None)
  Receive Date: 20110526
  Receipt Date: 20110519
  Transmission Date: 20111010
  Serious: Yes (Other)
  Sender: FDA-Public Use
  Company Number: US-JNJFOC-20110504289

PATIENT
  Sex: Female
  Weight: 72 kg

DRUGS (6)
  1. REBIF [Concomitant]
     Route: 058
     Dates: start: 20101220
  2. ALL OTHER THERAPEUTIC PRODUCTS [Concomitant]
     Indication: MYOCARDIAL INFARCTION
  3. ALL OTHER THERAPEUTIC PRODUCTS [Concomitant]
     Indication: CARDIAC FAILURE CONGESTIVE
  4. ANTIHYPERTENSIVE [Concomitant]
     Indication: HYPERTENSION
  5. REBIF [Concomitant]
     Indication: MULTIPLE SCLEROSIS
     Route: 058
  6. MOTRIN [Suspect]
     Indication: PRODUCT USED FOR UNKNOWN INDICATION
     Route: 065
     Dates: end: 20110301

REACTIONS (4)
  - COLITIS ISCHAEMIC [None]
  - PAIN [None]
  - FATIGUE [None]
  - PETECHIAE [None]
